FAERS Safety Report 21644644 (Version 3)
Quarter: 2023Q1

REPORT INFORMATION
  Report Type: Report from Study
  Country: US (occurrence: US)
  Receive Date: 20221125
  Receipt Date: 20230320
  Transmission Date: 20230418
  Serious: No
  Sender: FDA-Public Use
  Company Number: US-ABBVIE-4164356

PATIENT
  Sex: Male

DRUGS (3)
  1. HUMIRA [Suspect]
     Active Substance: ADALIMUMAB
     Indication: Crohn^s disease
     Route: 058
  2. HUMIRA [Suspect]
     Active Substance: ADALIMUMAB
     Route: 058
  3. HUMIRA [Suspect]
     Active Substance: ADALIMUMAB
     Route: 058
     Dates: start: 20210112

REACTIONS (8)
  - Memory impairment [Unknown]
  - Throat clearing [Recovered/Resolved]
  - Skin disorder [Unknown]
  - Furuncle [Unknown]
  - Pain [Unknown]
  - Amnesia [Unknown]
  - Furuncle [Unknown]
  - Pruritus [Unknown]
